FAERS Safety Report 17394826 (Version 1)
Quarter: 2020Q1

REPORT INFORMATION
  Report Type: Spontaneous
  Country: US (occurrence: US)
  Receive Date: 20200210
  Receipt Date: 20200210
  Transmission Date: 20200409
  Serious: No
  Sender: FDA-Public Use
  Company Number: NVSC2020US009616

PATIENT
  Sex: Female

DRUGS (1)
  1. ADAKVEO [Suspect]
     Active Substance: CRIZANLIZUMAB-TMCA
     Indication: SICKLE CELL DISEASE
     Dosage: 5 MG/KG (FIRST DOSE FOLLOWED BY SECOND FOR 2 WEEKS AND THEN EVERY 4 WEEKS)
     Route: 050
     Dates: start: 202001

REACTIONS (1)
  - Nausea [Recovered/Resolved]
